FAERS Safety Report 18717648 (Version 4)
Quarter: 2021Q2

REPORT INFORMATION
  Report Type: Spontaneous
  Country: US (occurrence: US)
  Receive Date: 20210108
  Receipt Date: 20210405
  Transmission Date: 20210717
  Serious: Yes (Other)
  Sender: FDA-Public Use
  Company Number: US-PFIZER INC-2021006215

PATIENT
  Sex: Male
  Weight: 95.25 kg

DRUGS (3)
  1. PHENYTOIN SODIUM. [Suspect]
     Active Substance: PHENYTOIN SODIUM
     Indication: EPILEPSY
     Dosage: 300 MG, 2X/DAY (100MG, 3 CAPSULES BY MOUTH IN THE MORNING, 3 CAPSULES BY MOUTH IN THE EVENING)
     Route: 048
  2. PHENYTOIN SODIUM. [Suspect]
     Active Substance: PHENYTOIN SODIUM
     Indication: SEIZURE
  3. LAMICTAL [Concomitant]
     Active Substance: LAMOTRIGINE
     Indication: SEIZURE
     Dosage: 300 MG, 1X/DAY (100MG, 3 CAPSULES BY MOUTH IN THE MORNING)
     Route: 048

REACTIONS (2)
  - Drug ineffective [Unknown]
  - Seizure [Unknown]
